FAERS Safety Report 8069003-2 (Version None)
Quarter: 2012Q1

REPORT INFORMATION
  Report Type: 
  Country: None (occurrence: None)
  Receive Date: 20120118
  Receipt Date: 20120110
  Transmission Date: 20120608
  Serious: Yes (Other)
  Sender: FDA-Public Use
  Company Number: 2011SP059229

PATIENT
  Age: 53 Year
  Sex: Female

DRUGS (2)
  1. IMPLANON [Suspect]
     Indication: CONTRACEPTION
     Dosage: 1 DF;UNK;UNK, 1 DF;UNK;UNK
     Dates: start: 20081223
  2. IMPLANON [Suspect]
     Indication: CONTRACEPTION
     Dosage: 1 DF;UNK;UNK, 1 DF;UNK;UNK
     Dates: start: 20051208, end: 20081223

REACTIONS (1)
  - MENINGIOMA [None]
